FAERS Safety Report 10048421 (Version 1)
Quarter: 2014Q1

REPORT INFORMATION
  Report Type: Spontaneous
  Country: US (occurrence: US)
  Receive Date: 20140331
  Receipt Date: 20140331
  Transmission Date: 20141002
  Serious: Yes (Other)
  Sender: FDA-Public Use
  Company Number: US-BAYER-2014-044986

PATIENT
  Age: 71 Year
  Sex: Male
  Weight: 91 kg

DRUGS (2)
  1. ALKA-SELTZER PLUS SPARKLING ORIGINAL COLD FORMULA [Suspect]
     Indication: NASOPHARYNGITIS
     Dosage: UNK DF, UNK
     Route: 048
     Dates: start: 2013, end: 2013
  2. OMEPRAZOLE [Concomitant]

REACTIONS (1)
  - Gastric haemorrhage [Recovered/Resolved]
